FAERS Safety Report 16677622 (Version 1)
Quarter: 2019Q3

REPORT INFORMATION
  Report Type: Spontaneous
  Country: IN (occurrence: IN)
  Receive Date: 20190807
  Receipt Date: 20190807
  Transmission Date: 20191004
  Serious: Yes (Other)
  Sender: FDA-Public Use
  Company Number: IN-MYLANLABS-2019M1072710

PATIENT
  Age: 7 Year
  Sex: Male

DRUGS (9)
  1. POTASSIUM CHLORIDE. [Concomitant]
     Active Substance: POTASSIUM CHLORIDE
     Indication: RENAL TUBULAR DISORDER
     Route: 065
  2. THIOTEPA. [Suspect]
     Active Substance: THIOTEPA
     Indication: EXTRAOCULAR RETINOBLASTOMA
     Dosage: D-5 TO D-3
     Route: 065
  3. CALCIUM [Concomitant]
     Active Substance: CALCIUM
     Indication: RENAL TUBULAR DISORDER
     Route: 065
  4. ETOPOSIDE. [Suspect]
     Active Substance: ETOPOSIDE
     Indication: EXTRAOCULAR RETINOBLASTOMA
     Dosage: D-5 TO D-3
     Route: 065
  5. CYCLOPHOSPHAMIDE. [Suspect]
     Active Substance: CYCLOPHOSPHAMIDE
     Indication: EXTRAOCULAR RETINOBLASTOMA
     Route: 065
  6. MAGNESIUM [Concomitant]
     Active Substance: MAGNESIUM
     Indication: RENAL TUBULAR DISORDER
     Route: 065
  7. VINCRISTINE [Suspect]
     Active Substance: VINCRISTINE
     Indication: EXTRAOCULAR RETINOBLASTOMA
     Route: 065
  8. CISPLATIN. [Suspect]
     Active Substance: CISPLATIN
     Indication: EXTRAOCULAR RETINOBLASTOMA
     Route: 065
  9. CARBOPLATIN. [Suspect]
     Active Substance: CARBOPLATIN
     Indication: EXTRAOCULAR RETINOBLASTOMA
     Dosage: D-8 TO D-6
     Route: 065

REACTIONS (9)
  - Hypertension [Unknown]
  - Cardiac arrest [Recovered/Resolved]
  - Hyponatraemia [Recovered/Resolved]
  - Status epilepticus [Recovered/Resolved]
  - Bone marrow failure [Recovering/Resolving]
  - Hypokalaemia [Recovered/Resolved]
  - BK virus infection [Recovered/Resolved]
  - Hypomagnesaemia [Recovered/Resolved]
  - Hypocalcaemia [Recovered/Resolved]
